FAERS Safety Report 5917240-2 (Version None)
Quarter: 2008Q4

REPORT INFORMATION
  Report Type: 
  Country: None (occurrence: None)
  Receive Date: 20081014
  Receipt Date: 20081001
  Transmission Date: 20090506
  Serious: Yes (Other)
  Sender: FDA-Public Use
  Company Number: US-ELI_LILLY_AND_COMPANY-US200810000699

PATIENT
  Age: 52 Year
  Sex: Female

DRUGS (3)
  1. FLUOXETINE HYDROCHLORIDE [Suspect]
     Dosage: 20 MG, DAILY (1/D)
     Route: 065
     Dates: start: 19940101, end: 19940101
  2. FLUOXETINE HYDROCHLORIDE [Suspect]
     Dosage: 20 MG, DAILY (1/D)
     Route: 065
     Dates: start: 19941201
  3. FLUPHENAZINE DECANOATE [Concomitant]
     Dosage: 25 MG, OTHER
     Route: 065
     Dates: start: 19940101

REACTIONS (8)
  - DELUSIONAL PERCEPTION [None]
  - HALLUCINATION [None]
  - LOGORRHOEA [None]
  - OBSTRUCTION GASTRIC [None]
  - PSYCHOMOTOR HYPERACTIVITY [None]
  - PYLORIC STENOSIS [None]
  - VOMITING [None]
  - WEIGHT DECREASED [None]
